FAERS Safety Report 24226009 (Version 1)
Quarter: 2024Q3

REPORT INFORMATION
  Report Type: Report from Study
  Country: CA (occurrence: CA)
  Receive Date: 20240820
  Receipt Date: 20240820
  Transmission Date: 20241017
  Serious: Yes (Hospitalization, Other)
  Sender: AMARIN
  Company Number: CA-Amarin Pharma  Inc-2024AMR000326

PATIENT
  Age: 86 Year
  Sex: Male

DRUGS (1)
  1. VASCEPA [Suspect]
     Active Substance: ICOSAPENT ETHYL
     Indication: Cardiovascular event prophylaxis
     Dosage: 2 GRAM BID
     Dates: start: 202205

REACTIONS (3)
  - Sepsis [Unknown]
  - Gallbladder disorder [Unknown]
  - Gallbladder operation [Unknown]
